APPROVED DRUG PRODUCT: ABLYSINOL
Active Ingredient: DEHYDRATED ALCOHOL
Strength: 99% (1ML) **Federal Register determination that product was not discontinued or withdrawn for safety or effectiveness reasons**
Dosage Form/Route: SOLUTION;INTRA-ARTERIAL
Application: N207987 | Product #001
Applicant: BPI LABS LLC
Approved: Jun 21, 2018 | RLD: Yes | RS: No | Type: DISCN